FAERS Safety Report 13197432 (Version 1)
Quarter: 2017Q1

REPORT INFORMATION
  Report Type: Spontaneous
  Country: US (occurrence: US)
  Receive Date: 20170207
  Receipt Date: 20170207
  Transmission Date: 20170428
  Serious: No
  Sender: FDA-Public Use
  Company Number: None

PATIENT
  Age: 66 Year
  Sex: Female

DRUGS (1)
  1. IBRANCE [Suspect]
     Active Substance: PALBOCICLIB
     Indication: NEOPLASM MALIGNANT
     Dosage: 75MG DAILY X21DAYS, 7 DAYS OFF PO
     Route: 048
     Dates: start: 20161017, end: 20170201

REACTIONS (1)
  - Anaemia [None]

NARRATIVE: CASE EVENT DATE: 20170201
